FAERS Safety Report 7818042-2 (Version None)
Quarter: 2011Q4

REPORT INFORMATION
  Report Type: 
  Country: None (occurrence: None)
  Receive Date: 20111017
  Receipt Date: 20111006
  Transmission Date: 20120403
  Serious: Yes (Life-Threatening, Hospitalization)
  Sender: FDA-Public Use
  Company Number: GB-CELGENEUS-167-C5013-10091506

PATIENT
  Sex: Male
  Weight: 93.1 kg

DRUGS (27)
  1. LENALIDOMIDE [Suspect]
     Indication: PROSTATE CANCER
     Dosage: 25 MILLIGRAM
     Route: 048
     Dates: start: 20100910, end: 20100920
  2. PREDNISONE [Suspect]
     Route: 065
     Dates: start: 20100922
  3. OXYCODONE HCL [Concomitant]
     Dosage: 40 MILLIGRAM
     Route: 048
     Dates: start: 20100920, end: 20100920
  4. OXYCODONE HCL [Concomitant]
     Dosage: 150 MILLIGRAM
     Route: 048
     Dates: start: 20100921, end: 20100921
  5. OXYCODONE HCL [Concomitant]
     Dosage: 200 MILLIGRAM
     Route: 048
     Dates: start: 20100922
  6. NEUPOGEN [Concomitant]
     Route: 065
  7. OXYCONTIN [Concomitant]
     Dosage: 240 MILLIGRAM
     Route: 048
     Dates: start: 20100909
  8. OXYCODONE HCL [Concomitant]
     Dosage: 60 MILLIGRAM
     Route: 048
     Dates: start: 20100921, end: 20100921
  9. ZOMETA [Concomitant]
     Route: 041
     Dates: start: 20100914, end: 20100914
  10. LENALIDOMIDE [Suspect]
     Route: 048
     Dates: start: 20101001
  11. BENDROFLUMETHIAZIDE [Concomitant]
     Dosage: 2.5 MILLIGRAM
     Route: 048
  12. GABAPENTIN [Concomitant]
     Indication: ANALGESIC THERAPY
     Dosage: 300 MILLIGRAM
     Route: 048
  13. OXYCODONE HCL [Concomitant]
     Dosage: 30MG + 20MG
     Route: 048
     Dates: start: 20100917, end: 20100918
  14. PREDNISONE [Suspect]
     Route: 065
     Dates: start: 20101001
  15. DICLOFENAC [Concomitant]
     Indication: ANALGESIC THERAPY
     Dosage: 150 MILLIGRAM
     Route: 048
  16. OXYCONTIN [Concomitant]
     Indication: PAIN
     Dosage: 180 MILLIGRAM
     Route: 048
     Dates: end: 20100909
  17. OXYCODONE HCL [Concomitant]
     Dosage: 50 MILLIGRAM
     Route: 048
     Dates: start: 20100923
  18. CIPROFLOXACIN [Concomitant]
     Indication: ANTIBIOTIC THERAPY
     Route: 048
     Dates: start: 20100914
  19. ZOLADEX [Concomitant]
     Route: 030
  20. OXYCODONE HCL [Concomitant]
     Indication: ANALGESIC THERAPY
     Route: 048
     Dates: start: 20100909
  21. OXYCODONE HCL [Concomitant]
     Route: 048
     Dates: start: 20100916, end: 20100916
  22. OXYCODONE HCL [Concomitant]
     Dosage: 60 MILLIGRAM
     Route: 048
     Dates: start: 20100919, end: 20100919
  23. PREDNISONE [Suspect]
     Indication: PROSTATE CANCER
     Dosage: 10 MILLIGRAM
     Route: 065
     Dates: start: 20100910, end: 20100918
  24. LANSOPRAZOLE [Concomitant]
     Dosage: 30 MILLIGRAM
     Route: 048
  25. DOCETAXEL [Suspect]
     Indication: PROSTATE CANCER
     Dosage: 150 MILLIGRAM
     Route: 065
     Dates: start: 20100910
  26. POLYETHYLENE GLYCOL [Concomitant]
     Indication: CONSTIPATION
     Route: 048
  27. ORAMORPH SR [Concomitant]
     Indication: PAIN
     Route: 048
     Dates: end: 20100909

REACTIONS (2)
  - NEUTROPENIC SEPSIS [None]
  - PAIN [None]
